FAERS Safety Report 23130965 (Version 2)
Quarter: 2023Q4

REPORT INFORMATION
  Report Type: Report from Study
  Country: FR (occurrence: FR)
  Receive Date: 20231031
  Receipt Date: 20231113
  Transmission Date: 20240110
  Serious: Yes (Other)
  Sender: FDA-Public Use
  Company Number: FR-TEVA-2023-FR-2940761

PATIENT
  Age: 29 Year
  Sex: Male

DRUGS (6)
  1. VINCRISTINE [Suspect]
     Active Substance: VINCRISTINE
     Indication: Astrocytoma
     Dosage: 1.4 MG/M2 AT DAY 8 AND 29; PART OF PCV REGIMEN
     Route: 042
  2. VINCRISTINE [Suspect]
     Active Substance: VINCRISTINE
     Indication: Isocitrate dehydrogenase gene mutation
  3. PROCARBAZINE HYDROCHLORIDE [Suspect]
     Active Substance: PROCARBAZINE HYDROCHLORIDE
     Indication: Astrocytoma
     Dosage: 60 MG/M2 FROM  DAY 8 TO 21; PART OF PCV REGIMEN
     Route: 048
  4. PROCARBAZINE HYDROCHLORIDE [Suspect]
     Active Substance: PROCARBAZINE HYDROCHLORIDE
     Indication: Isocitrate dehydrogenase gene mutation
  5. LOMUSTINE [Concomitant]
     Active Substance: LOMUSTINE
     Indication: Astrocytoma
     Dosage: AT DAY 1; PART OF PCV REGIMEN
     Route: 048
  6. LOMUSTINE [Concomitant]
     Active Substance: LOMUSTINE
     Indication: Isocitrate dehydrogenase gene mutation

REACTIONS (2)
  - Neutropenia [Unknown]
  - Dysaesthesia [Unknown]
